FAERS Safety Report 12810229 (Version 1)
Quarter: 2016Q4

REPORT INFORMATION
  Report Type: Spontaneous
  Country: US (occurrence: US)
  Receive Date: 20161004
  Receipt Date: 20161004
  Transmission Date: 20170207
  Serious: No
  Sender: FDA-Public Use
  Company Number: None

PATIENT
  Sex: Male
  Weight: 108.41 kg

DRUGS (2)
  1. RIBASPHERE [Concomitant]
     Active Substance: RIBAVIRIN
  2. HARVONI [Suspect]
     Active Substance: LEDIPASVIR\SOFOSBUVIR
     Indication: CHRONIC HEPATITIS C
     Dosage: 90MG-400MG DAILY ORAL
     Route: 048
     Dates: start: 20160708

REACTIONS (3)
  - Pruritus [None]
  - Platelet count decreased [None]
  - Fatigue [None]
